FAERS Safety Report 6379461-7 (Version None)
Quarter: 2009Q3

REPORT INFORMATION
  Report Type: 
  Country: None (occurrence: None)
  Receive Date: 20090928
  Receipt Date: 20090921
  Transmission Date: 20100115
  Serious: Yes (Hospitalization)
  Sender: FDA-Public Use
  Company Number: B0592850A

PATIENT
  Sex: Male

DRUGS (14)
  1. ELTROMBOPAG [Suspect]
     Indication: IDIOPATHIC THROMBOCYTOPENIC PURPURA
     Dosage: 50MG PER DAY
     Dates: start: 20090818, end: 20090903
  2. PREDNISONE TAB [Suspect]
     Dosage: 10MG PER DAY
  3. LIPITOR [Concomitant]
  4. CADEX [Concomitant]
  5. LOSEC [Concomitant]
  6. AMLODIPINE [Concomitant]
  7. BISOPROLOL FUMARATE [Concomitant]
  8. SPIRONOLACTONE [Concomitant]
  9. VITAMIN B-12 [Concomitant]
  10. FOLIC [Concomitant]
  11. UNISOM [Concomitant]
  12. Q10 [Concomitant]
  13. TRITACE [Concomitant]
  14. OMEPRAZOLE [Concomitant]

REACTIONS (14)
  - ABDOMINAL PAIN UPPER [None]
  - ABNORMAL FAECES [None]
  - CHEST PAIN [None]
  - DYSPNOEA [None]
  - FAECES DISCOLOURED [None]
  - HAEMORRHAGE [None]
  - HYPERHIDROSIS [None]
  - ISCHAEMIA [None]
  - MELAENA [None]
  - NAUSEA [None]
  - PNEUMONIA [None]
  - RALES [None]
  - STRESS [None]
  - VOMITING [None]
